FAERS Safety Report 11137109 (Version 1)
Quarter: 2015Q2

REPORT INFORMATION
  Report Type: Spontaneous
  Country: US (occurrence: US)
  Receive Date: 20150526
  Receipt Date: 20150526
  Transmission Date: 20150821
  Serious: No
  Sender: FDA-Public Use
  Company Number: US-MALLINCKRODT-T201501275

PATIENT
  Age: 43 Year
  Sex: Female
  Weight: 68 kg

DRUGS (2)
  1. H.P. ACTHAR [Suspect]
     Active Substance: CORTICOTROPIN
     Indication: MULTIPLE SCLEROSIS RELAPSE
     Dosage: 8 UNIT, ONCE DAILY
     Route: 065
     Dates: start: 20150213, end: 20150215
  2. H.P. ACTHAR [Suspect]
     Active Substance: CORTICOTROPIN
     Dosage: 80 UNIT, ONCE DAILY FOR 5 DAYS
     Route: 065
     Dates: start: 20150216

REACTIONS (2)
  - Drug ineffective [Unknown]
  - Incorrect dosage administered [Unknown]

NARRATIVE: CASE EVENT DATE: 201502
